FAERS Safety Report 9828027 (Version 1)
Quarter: 2013Q4

REPORT INFORMATION
  Report Type: Spontaneous
  Country: US (occurrence: None)
  Receive Date: 20131223
  Receipt Date: 20131223
  Transmission Date: 20140711
  Serious: Yes (Other)
  Sender: FDA-Public Use
  Company Number: 218444LEO

PATIENT
  Age: 31 Year
  Sex: Female

DRUGS (1)
  1. PICATO [Suspect]
     Indication: ACTINIC KERATOSIS
     Route: 061
     Dates: start: 20120717, end: 20120719

REACTIONS (4)
  - Application site discharge [None]
  - Application site erythema [None]
  - Application site pruritus [None]
  - Application site exfoliation [None]
